FAERS Safety Report 4381949-5 (Version None)
Quarter: 2004Q2

REPORT INFORMATION
  Report Type: 
  Country: None (occurrence: None)
  Receive Date: 20040615
  Receipt Date: 20040528
  Transmission Date: 20050107
  Serious: Yes (Other)
  Sender: FDA-Public Use
  Company Number: PHHO2004DE07738

PATIENT
  Age: 57 Year
  Sex: 0

DRUGS (4)
  1. LIORESAL [Suspect]
     Indication: CHRONIC MYELOID LEUKAEMIA
     Dosage: 400 MG, QD, ORAL
     Route: 048
     Dates: start: 20001109
  2. VOLTAREN [Suspect]
     Indication: SPINAL FRACTURE
     Dosage: ORAL
     Route: 048
     Dates: start: 20021101, end: 20031101
  3. BACLOFEN [Suspect]
     Indication: SPINAL FRACTURE
     Dosage: ORAL
     Route: 048
     Dates: start: 20021101, end: 20031101
  4. DICLOFENAC SODIUM [Suspect]
     Indication: SPINAL FRACTURE
     Dosage: ORAL
     Route: 048
     Dates: start: 20031110

REACTIONS (2)
  - BLOOD CREATININE INCREASED [None]
  - CREATININE RENAL CLEARANCE DECREASED [None]
